FAERS Safety Report 8966133 (Version 1)
Quarter: 2012Q4

REPORT INFORMATION
  Report Type: 
  Country: FR (occurrence: FR)
  Receive Date: 20121217
  Receipt Date: 20121217
  Transmission Date: 20130627
  Serious: Yes (Other)
  Sender: FDA-Public Use
  Company Number: FR-AMGEN-FRASP2012080316

PATIENT
  Age: 55 Year
  Sex: Male

DRUGS (1)
  1. ENBREL [Suspect]
     Indication: RHEUMATOID ARTHRITIS
     Dosage: 50 mg, UNK
     Dates: start: 201201, end: 2012

REACTIONS (3)
  - Amaurosis fugax [Unknown]
  - Headache [Unknown]
  - Nuclear magnetic resonance imaging abnormal [Unknown]
